FAERS Safety Report 22967361 (Version 4)
Quarter: 2024Q1

REPORT INFORMATION
  Report Type: Spontaneous
  Country: US (occurrence: US)
  Receive Date: 20230921
  Receipt Date: 20240220
  Transmission Date: 20240410
  Serious: No
  Sender: FDA-Public Use
  Company Number: US-PFIZER INC-PV202300157328

PATIENT
  Age: 71 Year
  Sex: Female

DRUGS (3)
  1. IBRANCE [Suspect]
     Active Substance: PALBOCICLIB
     Dosage: 125 MG, CYCLIC
  2. IBRANCE [Suspect]
     Active Substance: PALBOCICLIB
     Dosage: TAKE WITH FOOD AS DIRECTED FOR 21 DAYS FOLLOWED BY 7
     Route: 048
     Dates: start: 20230914
  3. IBRANCE [Suspect]
     Active Substance: PALBOCICLIB
     Dosage: TAKE 1 TABLET (100 MG TOTAL) DAILY
     Route: 048

REACTIONS (3)
  - Blood disorder [Unknown]
  - Neoplasm progression [Unknown]
  - Product dispensing error [Unknown]
